FAERS Safety Report 5986089-7 (Version None)
Quarter: 2008Q4

REPORT INFORMATION
  Report Type: 
  Country: None (occurrence: None)
  Receive Date: 20081209
  Receipt Date: 20081201
  Transmission Date: 20090506
  Serious: Yes (Other)
  Sender: FDA-Public Use
  Company Number: US-BAYER-200837527NA

PATIENT
  Age: 36 Year
  Weight: 56 kg

DRUGS (1)
  1. AVELOX [Suspect]
     Indication: INGROWING NAIL
     Dosage: TOTAL DAILY DOSE: 800 MG  UNIT DOSE: 400 MG
     Route: 048
     Dates: start: 20080409, end: 20080418

REACTIONS (1)
  - CLOSTRIDIUM DIFFICILE COLITIS [None]
